FAERS Safety Report 9348361 (Version 2)
Quarter: 2013Q3

REPORT INFORMATION
  Report Type: Spontaneous
  Country: US (occurrence: US)
  Receive Date: 20130614
  Receipt Date: 20130718
  Transmission Date: 20140515
  Serious: No
  Sender: FDA-Public Use
  Company Number: US-BAYER-2013-070121

PATIENT
  Age: 62 Year
  Sex: Female

DRUGS (4)
  1. AVELOX [Suspect]
     Indication: PNEUMONIA
     Dosage: 400 MG, QD
     Route: 048
     Dates: start: 20130525, end: 20130531
  2. LEVOTHYROXINE [Concomitant]
  3. CODEINE W/GUAIFENESIN [Concomitant]
  4. CODEINE W/GUAIFENESIN [Concomitant]

REACTIONS (4)
  - Vomiting [Recovering/Resolving]
  - Abdominal discomfort [Recovering/Resolving]
  - Nausea [Recovering/Resolving]
  - Headache [Recovering/Resolving]
